FAERS Safety Report 25218941 (Version 2)
Quarter: 2025Q2

REPORT INFORMATION
  Report Type: Spontaneous
  Country: US (occurrence: US)
  Receive Date: 20250421
  Receipt Date: 20250502
  Transmission Date: 20250716
  Serious: Yes (Life-Threatening, Hospitalization)
  Sender: TEVA
  Company Number: US-TEVA-VS-3323613

PATIENT
  Sex: Female

DRUGS (4)
  1. EPINEPHRINE [Suspect]
     Active Substance: EPINEPHRINE
     Indication: Left ventricular dysfunction
     Route: 065
  2. MILRINONE [Suspect]
     Active Substance: MILRINONE
     Indication: Left ventricular dysfunction
     Route: 065
  3. DOPAMINE [Suspect]
     Active Substance: DOPAMINE HYDROCHLORIDE
     Indication: Left ventricular dysfunction
     Route: 065
  4. CALCIUM [Suspect]
     Active Substance: CALCIUM
     Indication: Left ventricular dysfunction
     Route: 065

REACTIONS (1)
  - Drug ineffective [Unknown]
